FAERS Safety Report 24061638 (Version 1)
Quarter: 2024Q3

REPORT INFORMATION
  Report Type: Spontaneous
  Country: US (occurrence: None)
  Receive Date: 20240705
  Receipt Date: 20240705
  Transmission Date: 20241016
  Serious: Yes (Hospitalization)
  Sender: Public
  Company Number: None

PATIENT
  Age: 20 Year
  Sex: Female

DRUGS (2)
  1. VIGABATRIN [Suspect]
     Active Substance: VIGABATRIN
     Indication: Epilepsy
     Dosage: 20ML BID BY MOUTH?
     Route: 048
     Dates: start: 202312
  2. VIGABATRIN [Suspect]
     Active Substance: VIGABATRIN
     Indication: Seizure

REACTIONS (2)
  - Malnutrition [None]
  - Dysphagia [None]

NARRATIVE: CASE EVENT DATE: 20240610
